FAERS Safety Report 15526041 (Version 2)
Quarter: 2018Q4

REPORT INFORMATION
  Report Type: Report from Study
  Country: US (occurrence: US)
  Receive Date: 20181018
  Receipt Date: 20181119
  Transmission Date: 20190205
  Serious: Yes (Other)
  Sender: FDA-Public Use
  Company Number: US-SA-2018SA286479

PATIENT
  Age: 63 Year
  Sex: Female

DRUGS (1)
  1. INSULIN GLARGINE [Suspect]
     Active Substance: INSULIN GLARGINE
     Indication: DIABETES MELLITUS
     Dosage: 80 U, BID
     Route: 058

REACTIONS (6)
  - Nasopharyngitis [Unknown]
  - Cough [Unknown]
  - Inappropriate schedule of product administration [Unknown]
  - Cataract [Unknown]
  - Pruritus [Unknown]
  - Device issue [Unknown]
